FAERS Safety Report 15586840 (Version 1)
Quarter: 2018Q4

REPORT INFORMATION
  Report Type: Spontaneous
  Country: US (occurrence: US)
  Receive Date: 20181101
  Receipt Date: 20181101
  Transmission Date: 20190205
  Serious: Yes (Hospitalization)
  Sender: FDA-Public Use
  Company Number: None

PATIENT
  Age: 69 Year
  Sex: Male
  Weight: 93.4 kg

DRUGS (1)
  1. TEMOZOLOMIDE. [Suspect]
     Active Substance: TEMOZOLOMIDE
     Dates: end: 20161002

REACTIONS (16)
  - Abdominal pain upper [None]
  - Skin abrasion [None]
  - Skin laceration [None]
  - Dizziness [None]
  - Tachycardia [None]
  - Fall [None]
  - Fatigue [None]
  - Unhealthy diet [None]
  - Syncope [None]
  - Cholecystitis acute [None]
  - Brain oedema [None]
  - Asthenia [None]
  - Treatment noncompliance [None]
  - Confusional state [None]
  - Failure to thrive [None]
  - Glycosuria [None]

NARRATIVE: CASE EVENT DATE: 20181004
